FAERS Safety Report 5785926-9 (Version None)
Quarter: 2008Q2

REPORT INFORMATION
  Report Type: 
  Country: None (occurrence: None)
  Receive Date: 20080624
  Receipt Date: 20080611
  Transmission Date: 20081010
  Serious: Yes (Hospitalization, Other)
  Sender: FDA-Public Use
  Company Number: DE-ELI_LILLY_AND_COMPANY-DE200806002656

PATIENT
  Sex: Male
  Weight: 62 kg

DRUGS (1)
  1. FORTEO [Suspect]
     Route: 058

REACTIONS (1)
  - CARDIOVASCULAR DISORDER [None]
